FAERS Safety Report 4353592-5 (Version None)
Quarter: 2004Q2

REPORT INFORMATION
  Report Type: 
  Country: None (occurrence: None)
  Receive Date: 20040430
  Receipt Date: 20040420
  Transmission Date: 20050107
  Serious: Yes (Other)
  Sender: FDA-Public Use
  Company Number: 066-20785-04040537

PATIENT
  Sex: 0

DRUGS (5)
  1. THALIDOMIDE (THALIDOMIDE) [Suspect]
     Indication: MULTIPLE MYELOMA
     Dosage: 200 MG, QD, ORAL
     Route: 048
  2. VINCRISTINE (VINCRISTINE) (POWDER) [Suspect]
     Indication: MULTIPLE MYELOMA
     Dosage: 2 MG, DAY 1, INTRAVENOUS
     Route: 042
  3. LIPOSOMAL DOXORUBICIN (DOXORUBICIN HYDROCHLORIDE0)(UNKNOWN) [Suspect]
     Indication: MULTIPLE MYELOMA
     Dosage: 40 MG/M2, DAY 1, INTRAVENOUS
     Route: 042
  4. DEXAMETHASONE [Suspect]
     Indication: MULTIPLE MYELOMA
     Dosage: SEE IMAGE
     Route: 048
  5. DEXAMETHASONE [Suspect]
     Indication: MULTIPLE MYELOMA
     Dosage: SEE IMAGE
     Route: 048

REACTIONS (1)
  - MUCOSAL INFLAMMATION [None]
